FAERS Safety Report 9098444 (Version 2)
Quarter: 2013Q3

REPORT INFORMATION
  Report Type: Spontaneous
  Country: FR (occurrence: FR)
  Receive Date: 20130213
  Receipt Date: 20130708
  Transmission Date: 20140515
  Serious: Yes (Hospitalization, Other)
  Sender: FDA-Public Use
  Company Number: FR-PFIZER INC-2013039591

PATIENT
  Age: 49 Year
  Sex: Female

DRUGS (7)
  1. DALACINE [Suspect]
     Indication: SEPSIS
     Dosage: UNK
     Route: 048
     Dates: start: 20120208, end: 20120213
  2. AMOXICILLIN [Concomitant]
     Indication: SEPSIS
     Dosage: UNK
     Route: 048
     Dates: start: 20120208, end: 20120221
  3. FUNGIZONE [Concomitant]
     Indication: SEPSIS
     Dosage: UNK
     Route: 048
     Dates: start: 20120208, end: 20120221
  4. OFLOXACIN [Concomitant]
     Indication: SEPSIS
     Dosage: UNK
     Route: 048
     Dates: start: 20120208, end: 20120221
  5. CODOLIPRANE [Concomitant]
     Dosage: UNK
     Route: 048
  6. LEXOMIL [Concomitant]
     Dosage: UNK
     Route: 048
  7. INEXIUM [Concomitant]
     Dosage: UNK
     Route: 048

REACTIONS (5)
  - Hepatitis cholestatic [Unknown]
  - Blood alkaline phosphatase increased [Recovering/Resolving]
  - Rash maculo-papular [Recovered/Resolved]
  - Pruritus [Recovered/Resolved]
  - Gamma-glutamyltransferase increased [Recovering/Resolving]
